FAERS Safety Report 8615314-9 (Version None)
Quarter: 2012Q3

REPORT INFORMATION
  Report Type: 
  Country: None (occurrence: None)
  Receive Date: 20120823
  Receipt Date: 20120814
  Transmission Date: 20120928
  Serious: Yes (Other)
  Sender: FDA-Public Use
  Company Number: US-ELI_LILLY_AND_COMPANY-US201208004851

PATIENT
  Sex: Female

DRUGS (7)
  1. PERCOGESIC [Concomitant]
  2. FENTANYL [Concomitant]
  3. CYMBALTA [Suspect]
     Indication: BACK PAIN
     Dosage: 30 MG, TID
     Route: 065
  4. LAXATIVE [Concomitant]
  5. OXYCODONE HCL [Concomitant]
  6. CYMBALTA [Suspect]
     Dosage: 30 MG, BID
     Route: 065
  7. OXYCONTIN [Concomitant]

REACTIONS (6)
  - DEVICE BREAKAGE [None]
  - HYPERHIDROSIS [None]
  - STOMATITIS [None]
  - ORAL FUNGAL INFECTION [None]
  - PRURITUS [None]
  - PAPULE [None]
